FAERS Safety Report 8231961 (Version 6)
Quarter: 2013Q4

REPORT INFORMATION
  Report Type: Spontaneous
  Country: GR (occurrence: GR)
  Receive Date: 20111107
  Receipt Date: 20131017
  Transmission Date: 20140711
  Serious: Yes (Death, Life-Threatening, Hospitalization, Other)
  Sender: FDA-Public Use
  Company Number: GR-BIOGENIDEC-2011BI041114

PATIENT
  Age: 31 Year
  Sex: Female
  Weight: 55 kg

DRUGS (5)
  1. TYSABRI [Suspect]
     Indication: MULTIPLE SCLEROSIS
     Route: 042
     Dates: start: 200705, end: 20110704
  2. XANAX [Concomitant]
     Route: 048
  3. KEPPRA [Concomitant]
     Route: 048
  4. INDERAL [Concomitant]
  5. TOVIAZ [Concomitant]
     Route: 048

REACTIONS (4)
  - Sepsis [Fatal]
  - Multi-organ failure [Fatal]
  - Progressive multifocal leukoencephalopathy [Unknown]
  - Tracheostomy [Unknown]
